FAERS Safety Report 22300224 (Version 6)
Quarter: 2023Q2

REPORT INFORMATION
  Report Type: Spontaneous
  Country: US (occurrence: US)
  Receive Date: 20230509
  Receipt Date: 20230622
  Transmission Date: 20230721
  Serious: Yes (Other)
  Sender: FDA-Public Use
  Company Number: US-PFIZER INC-PV202300078992

PATIENT
  Age: 77 Year
  Sex: Female

DRUGS (1)
  1. XELJANZ [Suspect]
     Active Substance: TOFACITINIB CITRATE
     Dosage: 5 MG

REACTIONS (9)
  - Hand deformity [Unknown]
  - Muscle spasms [Unknown]
  - Pain in extremity [Unknown]
  - Bradykinesia [Unknown]
  - Hypoacusis [Unknown]
  - COVID-19 [Unknown]
  - Infection [Unknown]
  - Condition aggravated [Unknown]
  - Pain [Unknown]
